FAERS Safety Report 21747507 (Version 1)
Quarter: 2022Q4

REPORT INFORMATION
  Report Type: Spontaneous
  Country: US (occurrence: US)
  Receive Date: 20221219
  Receipt Date: 20221219
  Transmission Date: 20230113
  Serious: No
  Sender: FDA-Public Use
  Company Number: US-NOVEN PHARMACEUTICALS, INC.-2022-NOV-US000715

PATIENT
  Age: 64 Year
  Sex: Female

DRUGS (3)
  1. ESTRADIOL [Suspect]
     Active Substance: ESTRADIOL
     Indication: Hot flush
     Dosage: 0.05 MG, 1 PATCH EVEY 3-4 DAYS
     Route: 062
     Dates: start: 2022
  2. ESTRADIOL [Suspect]
     Active Substance: ESTRADIOL
     Indication: Night sweats
  3. ESTRADIOL [Suspect]
     Active Substance: ESTRADIOL
     Indication: Artificial menopause

REACTIONS (5)
  - Therapeutic product ineffective [Not Recovered/Not Resolved]
  - Device difficult to use [Not Recovered/Not Resolved]
  - Adhesive tape use [Not Recovered/Not Resolved]
  - Device breakage [Not Recovered/Not Resolved]
  - Product adhesion issue [Not Recovered/Not Resolved]

NARRATIVE: CASE EVENT DATE: 20220101
